FAERS Safety Report 19159345 (Version 1)
Quarter: 2021Q2

REPORT INFORMATION
  Report Type: Spontaneous
  Country: CN (occurrence: CN)
  Receive Date: 20210420
  Receipt Date: 20210420
  Transmission Date: 20210717
  Serious: Yes (Other)
  Sender: FDA-Public Use
  Company Number: CN-ASTRAZENECA-2021A296338

PATIENT
  Age: 68 Year
  Sex: Male
  Weight: 51 kg

DRUGS (2)
  1. IMFINZI [Suspect]
     Active Substance: DURVALUMAB
     Indication: NON-SMALL CELL LUNG CANCER STAGE III
     Dosage: 6 CYCLES (THE LAST DOSE OF MEDICATION WAS 500 MG /CYCLE. SPECIFICATION OF THE DRUG USED WAS 500MG...
     Route: 042
     Dates: start: 202001, end: 202003
  2. IMFINZI [Suspect]
     Active Substance: DURVALUMAB
     Indication: NON-SMALL CELL LUNG CANCER STAGE III
     Dosage: ONCE EVERY TWO WEEKS
     Route: 042
     Dates: start: 202102

REACTIONS (1)
  - Radiation pneumonitis [Recovered/Resolved]

NARRATIVE: CASE EVENT DATE: 202101
